FAERS Safety Report 12314999 (Version 1)
Quarter: 2016Q2

REPORT INFORMATION
  Report Type: Spontaneous
  Country: NL (occurrence: NL)
  Receive Date: 20160428
  Receipt Date: 20160428
  Transmission Date: 20160815
  Serious: Yes (Hospitalization)
  Sender: FDA-Public Use
  Company Number: NL-UNICHEM LABORATORIES LIMITED-UCM201604-000065

PATIENT
  Age: 46 Year
  Sex: Male

DRUGS (4)
  1. METOPROLOL. [Suspect]
     Active Substance: METOPROLOL
  2. ACETYLSALICYLIC ACID [Concomitant]
     Active Substance: ASPIRIN
  3. VALSARTAN. [Suspect]
     Active Substance: VALSARTAN
  4. AMLODIPINE [Suspect]
     Active Substance: AMLODIPINE BESYLATE

REACTIONS (6)
  - Acute kidney injury [Unknown]
  - Seizure [Unknown]
  - Toxicity to various agents [Unknown]
  - Hepatic failure [Unknown]
  - Myocardial infarction [Unknown]
  - Shock [Unknown]
